FAERS Safety Report 5217071-5 (Version None)
Quarter: 2007Q1

REPORT INFORMATION
  Report Type: 
  Country: None (occurrence: None)
  Receive Date: 20070124
  Receipt Date: 20070115
  Transmission Date: 20070707
  Serious: Yes (Hospitalization)
  Sender: FDA-Public Use
  Company Number: US-ELI_LILLY_AND_COMPANY-US200612000912

PATIENT
  Age: 88 Year
  Sex: Male

DRUGS (7)
  1. FORTEO [Suspect]
     Dosage: UNK, UNK
     Dates: start: 20051201
  2. VITAMIN CAP [Concomitant]
     Dosage: 1 UNK, DAILY (1/D)
  3. ASPIRIN [Concomitant]
     Dosage: 81 MG, DAILY (1/D)
  4. ZOCOR [Concomitant]
     Dosage: 20 MG, UNK
  5. CITALOPRAM HYDROBROMIDE [Concomitant]
     Dosage: 20 MG, DAILY (1/D)
  6. ALLOPURINOL SODIUM [Concomitant]
     Dosage: 300 MG, DAILY (1/D)
  7. LEVAQUIN [Concomitant]
     Dosage: 250 UNK, DAILY (1/D)

REACTIONS (6)
  - ADVERSE DRUG REACTION [None]
  - AGITATION [None]
  - DELIRIUM [None]
  - DEPRESSION [None]
  - HYDRONEPHROSIS [None]
  - PROSTATE CANCER METASTATIC [None]
